FAERS Safety Report 25069481 (Version 1)
Quarter: 2025Q1

REPORT INFORMATION
  Report Type: Other
  Country: CN (occurrence: CN)
  Receive Date: 20250312
  Receipt Date: 20250312
  Transmission Date: 20250409
  Serious: Yes (Other)
  Sender: LYNE LABORATORIES
  Company Number: CN-Lyne Laboratories Inc.-2172735

PATIENT
  Age: 55 Year
  Sex: Female

DRUGS (7)
  1. DEXAMETHASONE [Suspect]
     Active Substance: DEXAMETHASONE
     Indication: Plasma cell myeloma
  2. DEXAMETHASONE [Suspect]
     Active Substance: DEXAMETHASONE
     Indication: Plasmacytoma
  3. SELINEXOR [Suspect]
     Active Substance: SELINEXOR
  4. OLANZAPINE [Concomitant]
     Active Substance: OLANZAPINE
  5. PALONOSETRON. [Concomitant]
  6. LENALIDOMIDE [Suspect]
     Active Substance: LENALIDOMIDE
  7. BORTEZOMIB [Suspect]
     Active Substance: BORTEZOMIB

REACTIONS (3)
  - Myelosuppression [Recovering/Resolving]
  - Product use in unapproved indication [Unknown]
  - Fatigue [Unknown]
